FAERS Safety Report 20832038 (Version 1)
Quarter: 2022Q2

REPORT INFORMATION
  Report Type: Spontaneous
  Country: FR (occurrence: FR)
  Receive Date: 20220516
  Receipt Date: 20220516
  Transmission Date: 20220721
  Serious: Yes (Hospitalization, Other)
  Sender: FDA-Public Use
  Company Number: FR-AFSSAPS-TO20221846

PATIENT
  Age: 78 Year
  Weight: 60 kg

DRUGS (5)
  1. FUROSEMIDE [Suspect]
     Active Substance: FUROSEMIDE
     Indication: Peripheral arterial occlusive disease
     Dosage: 80 MILLIGRAM, ONCE A DAY (40MG 2 TIMES A DAY)
     Route: 048
     Dates: start: 20220311, end: 20220314
  2. IRBESARTAN [Suspect]
     Active Substance: IRBESARTAN
     Indication: Hypertension
     Dosage: 150 MILLIGRAM, ONCE A DAY (IN THE LONG TERM)
     Route: 048
     Dates: end: 20220315
  3. MORPHINE SULFATE [Suspect]
     Active Substance: MORPHINE SULFATE
     Indication: Pain
     Dosage: 15 GTT DROPS, ONCE A DAY (5 DROPS MORNING NOON AND EVENING)
     Route: 048
     Dates: end: 20220315
  4. SKENAN [Suspect]
     Active Substance: MORPHINE SULFATE
     Indication: Pain
     Dosage: 2 DOSAGE FORM, ONCE A DAY (2 TABS / D)
     Route: 048
     Dates: start: 20220311, end: 20220315
  5. ELIQUIS [Suspect]
     Active Substance: APIXABAN
     Indication: Atrial fibrillation
     Dosage: 2 DOSAGE FORM, ONCE A DAY (5MG TWICE A DAY)
     Route: 048
     Dates: start: 202201, end: 20220309

REACTIONS (3)
  - Acute kidney injury [Recovered/Resolved]
  - Gastrointestinal haemorrhage [Unknown]
  - Toxicity to various agents [Recovered/Resolved]

NARRATIVE: CASE EVENT DATE: 20220201
